FAERS Safety Report 7956812-0 (Version None)
Quarter: 2011Q4

REPORT INFORMATION
  Report Type: 
  Country: None (occurrence: None)
  Receive Date: 20111201
  Receipt Date: 20111121
  Transmission Date: 20120403
  Serious: Yes (Life-Threatening, Hospitalization, Other)
  Sender: FDA-Public Use
  Company Number: 2011P1011924

PATIENT
  Age: 31 Year
  Sex: Female

DRUGS (2)
  1. ETHANOL (NO PREF. NAME) [Suspect]
     Indication: OVERDOSE
     Dosage: X1;PO
     Route: 048
  2. PROPRANOLOL [Suspect]
     Indication: OVERDOSE
     Dosage: 3.6 GM;X1;PO
     Route: 048

REACTIONS (19)
  - COMA [None]
  - ELECTROCARDIOGRAM QRS COMPLEX PROLONGED [None]
  - BLOOD GLUCOSE INCREASED [None]
  - GENERAL PHYSICAL HEALTH DETERIORATION [None]
  - CONVULSION [None]
  - HYPOGLYCAEMIA [None]
  - OXYGEN SATURATION DECREASED [None]
  - BLOOD PRESSURE IMMEASURABLE [None]
  - SUPRAVENTRICULAR TACHYCARDIA [None]
  - HEART RATE DECREASED [None]
  - CONDUCTION DISORDER [None]
  - BLOOD PH ABNORMAL [None]
  - DRUG INEFFECTIVE [None]
  - BLOOD GASES ABNORMAL [None]
  - CARDIOTOXICITY [None]
  - RESPIRATORY RATE DECREASED [None]
  - ELECTROCARDIOGRAM P WAVE ABNORMAL [None]
  - NODAL RHYTHM [None]
  - TOXICITY TO VARIOUS AGENTS [None]
